FAERS Safety Report 5033210-3 (Version None)
Quarter: 2006Q2

REPORT INFORMATION
  Report Type: 
  Country: None (occurrence: None)
  Receive Date: 20060620
  Receipt Date: 20060612
  Transmission Date: 20061013
  Serious: Yes (Death)
  Sender: FDA-Public Use
  Company Number: US200606003055

PATIENT
  Age: 43 Year
  Sex: Male

DRUGS (3)
  1. ZYPREXA [Suspect]
     Indication: PARANOIA
     Dosage: 20 MG, 2/D,
     Dates: start: 20060501
  2. ANTIBIOTICS [Concomitant]
  3. ALCOHOL (ETHANOL) [Concomitant]

REACTIONS (5)
  - COMPLETED SUICIDE [None]
  - INJURY ASPHYXIATION [None]
  - INTENTIONAL SELF-INJURY [None]
  - PARANOIA [None]
  - PRESCRIBED OVERDOSE [None]
